FAERS Safety Report 8576229-8 (Version None)
Quarter: 2012Q3

REPORT INFORMATION
  Report Type: 
  Country: None (occurrence: None)
  Receive Date: 20120807
  Receipt Date: 20120731
  Transmission Date: 20120928
  Serious: Yes (Hospitalization)
  Sender: FDA-Public Use
  Company Number: FR-PFIZER INC-2012184854

PATIENT
  Age: 65 Year
  Sex: Male
  Weight: 66 kg

DRUGS (11)
  1. PREDNISONE TAB [Concomitant]
     Indication: JUVENILE ARTHRITIS
     Dosage: 3 MG, 1X/DAY
  2. KETOPROFEN [Concomitant]
     Indication: JUVENILE ARTHRITIS
     Dosage: 100 TO 300 MG DAILY
  3. SERTRALINE [Concomitant]
     Dosage: 100 MG DAILY
  4. ASPEGIC 1000 [Concomitant]
     Dosage: 100 MG, 1X/DAY
  5. METHOTREXATE [Concomitant]
     Indication: JUVENILE ARTHRITIS
     Dosage: 20 MG, WEEKLY
  6. ZYVOX [Suspect]
     Dosage: 600 MG, 2X/DAY
     Route: 048
     Dates: start: 20120531, end: 20120626
  7. TETRAZEPAM [Concomitant]
  8. BISOPROLOL [Concomitant]
  9. METFORMIN [Concomitant]
     Indication: TYPE 2 DIABETES MELLITUS
     Dosage: 850 MG, 3X/DAY
  10. CLARITHROMYCIN [Suspect]
     Dosage: 500 MG, 2X/DAY
     Route: 048
     Dates: start: 20120531, end: 20120626
  11. PANTOPRAZOLE [Concomitant]

REACTIONS (3)
  - WEIGHT DECREASED [None]
  - PANCYTOPENIA [None]
  - VOMITING [None]
